FAERS Safety Report 6937647-4 (Version None)
Quarter: 2010Q3

REPORT INFORMATION
  Report Type: 
  Country: None (occurrence: None)
  Receive Date: 20100820
  Receipt Date: 20100820
  Transmission Date: 20110219
  Serious: Yes (Hospitalization)
  Sender: FDA-Public Use
  Company Number: None

PATIENT
  Age: 57 Year
  Sex: Male
  Weight: 102 kg

DRUGS (8)
  1. RISPERIDONE [Suspect]
     Indication: POST-TRAUMATIC STRESS DISORDER
     Dosage: 0.5MG PO QHS
     Route: 048
     Dates: start: 20081001
  2. CITALOPRAM HYDROBROMIDE [Concomitant]
  3. TRAZODONE HCL [Concomitant]
  4. COMPAZINE [Concomitant]
  5. FINASTERIDE [Concomitant]
  6. VARDENAFIL HYDROCHLORIDE (LEVITRA) [Concomitant]
  7. FERROUS SULFATE [Concomitant]
  8. OMEPRAZOLE [Concomitant]

REACTIONS (2)
  - ALCOHOL ABUSE [None]
  - DRUG ABUSE [None]
